FAERS Safety Report 7132674-9 (Version None)
Quarter: 2010Q4

REPORT INFORMATION
  Report Type: 
  Country: None (occurrence: None)
  Receive Date: 20101130
  Receipt Date: 20101130
  Transmission Date: 20110411
  Serious: Yes (Other)
  Sender: FDA-Public Use
  Company Number: None

PATIENT
  Sex: Male
  Weight: 99.7913 kg

DRUGS (2)
  1. PROPOFOL [Suspect]
     Indication: COLONOSCOPY
     Dates: start: 20101123, end: 20101123
  2. PROPOFOL [Suspect]
     Indication: SEDATION
     Dates: start: 20101123, end: 20101123

REACTIONS (6)
  - ARTHRALGIA [None]
  - CHILLS [None]
  - COUGH [None]
  - NASAL CONGESTION [None]
  - PYREXIA [None]
  - RESPIRATORY DISTRESS [None]
